FAERS Safety Report 8168224-8 (Version None)
Quarter: 2012Q1

REPORT INFORMATION
  Report Type: 
  Country: None (occurrence: None)
  Receive Date: 20120227
  Receipt Date: 20120222
  Transmission Date: 20120608
  Serious: Yes (Hospitalization, Other)
  Sender: FDA-Public Use
  Company Number: US-PFIZER INC-2012047302

PATIENT
  Sex: Female
  Weight: 58.957 kg

DRUGS (4)
  1. GABAPENTIN [Suspect]
     Dosage: 100 MG, 2X/DAY
     Route: 048
     Dates: start: 20100901, end: 20120221
  2. HYDROCODONE [Suspect]
     Dosage: UNK
  3. GABAPENTIN [Suspect]
     Indication: SYSTEMIC LUPUS ERYTHEMATOSUS
     Dosage: UNK
  4. ALPRAZOLAM [Suspect]
     Dosage: UNK

REACTIONS (3)
  - ASTHENIA [None]
  - ABDOMINAL PAIN [None]
  - RED BLOOD CELL COUNT DECREASED [None]
